FAERS Safety Report 4844922-6 (Version None)
Quarter: 2005Q4

REPORT INFORMATION
  Report Type: 
  Country: None (occurrence: None)
  Receive Date: 20051128
  Receipt Date: 20051115
  Transmission Date: 20060501
  Serious: Yes (Hospitalization)
  Sender: FDA-Public Use
  Company Number: IMP_1931_2005

PATIENT
  Age: 51 Year
  Sex: Female

DRUGS (2)
  1. BUPROPION HCL [Suspect]
     Dosage: 30000 MG ONCE PO
     Route: 048
  2. CLONAZEPAM [Suspect]
     Dosage: 1 MG ONCE PO
     Route: 048

REACTIONS (9)
  - AGITATION [None]
  - BLOOD GLUCOSE INCREASED [None]
  - BLOOD PH INCREASED [None]
  - BLOOD SODIUM INCREASED [None]
  - DELIRIUM [None]
  - ELECTROCARDIOGRAM QRS COMPLEX SHORTENED [None]
  - HALLUCINATION [None]
  - MULTIPLE DRUG OVERDOSE [None]
  - PCO2 DECREASED [None]
